FAERS Safety Report 22029745 (Version 2)
Quarter: 2023Q1

REPORT INFORMATION
  Report Type: Spontaneous
  Country: US (occurrence: US)
  Receive Date: 20230223
  Receipt Date: 20230227
  Transmission Date: 20230418
  Serious: No
  Sender: FDA-Public Use
  Company Number: US-PFIZER INC-202101416937

PATIENT
  Age: 74 Year
  Sex: Male

DRUGS (2)
  1. CAVERJECT [Suspect]
     Active Substance: ALPROSTADIL
     Dosage: UNK
  2. BACTERIOSTATIC WATER [Concomitant]
     Active Substance: WATER
     Dosage: UNK

REACTIONS (1)
  - Penile contusion [Unknown]
